FAERS Safety Report 4359863-0 (Version None)
Quarter: 2004Q2

REPORT INFORMATION
  Report Type: 
  Country: None (occurrence: None)
  Receive Date: 20040517
  Receipt Date: 20040517
  Transmission Date: 20050107
  Serious: Yes (Other)
  Sender: FDA-Public Use
  Company Number: None

PATIENT
  Age: 31 Year
  Sex: Female
  Weight: 90.7194 kg

DRUGS (3)
  1. ZOLOFT [Suspect]
     Indication: DEPRESSION
     Dosage: 50 MG SID ORAL
     Route: 048
     Dates: start: 20001115, end: 20040415
  2. TRIPHASIL-21 [Concomitant]
  3. ERYTHROMYCIN [Concomitant]

REACTIONS (6)
  - DISORIENTATION [None]
  - EUPHORIC MOOD [None]
  - HYPOAESTHESIA ORAL [None]
  - MOOD SWINGS [None]
  - SUICIDAL IDEATION [None]
  - VERTIGO [None]
